FAERS Safety Report 8424030-8 (Version None)
Quarter: 2012Q2

REPORT INFORMATION
  Report Type: 
  Country: None (occurrence: None)
  Receive Date: 20120608
  Receipt Date: 20110418
  Transmission Date: 20120825
  Serious: No
  Sender: FDA-Public Use
  Company Number: US-ASTRAZENECA-2011SE22667

PATIENT
  Sex: Female

DRUGS (3)
  1. BROVANA [Suspect]
  2. PULMICORT [Suspect]
     Route: 055
  3. SPIRIVA [Suspect]

REACTIONS (1)
  - TACHYCARDIA [None]
